FAERS Safety Report 8394426-1 (Version None)
Quarter: 2012Q2

REPORT INFORMATION
  Report Type: 
  Country: None (occurrence: None)
  Receive Date: 20120530
  Receipt Date: 20120523
  Transmission Date: 20120825
  Serious: Yes (Hospitalization)
  Sender: FDA-Public Use
  Company Number: PHHY2012BR028386

PATIENT
  Age: 65 Year
  Sex: Male
  Weight: 68 kg

DRUGS (1)
  1. FORMOTEROL FUMARATE [Suspect]
     Indication: CHRONIC OBSTRUCTIVE PULMONARY DISEASE
     Dosage: 1 DF, Q12H
     Dates: start: 20111201

REACTIONS (9)
  - CANDIDIASIS [None]
  - THROAT IRRITATION [None]
  - INCREASED UPPER AIRWAY SECRETION [None]
  - INFLAMMATION [None]
  - GLOSSODYNIA [None]
  - ASPERGILLOSIS [None]
  - DYSPHONIA [None]
  - SUBCUTANEOUS EMPHYSEMA [None]
  - DYSPNOEA [None]
